FAERS Safety Report 21145745 (Version 1)
Quarter: 2022Q3

REPORT INFORMATION
  Report Type: Spontaneous
  Country: CA (occurrence: CA)
  Receive Date: 20220729
  Receipt Date: 20220729
  Transmission Date: 20221026
  Serious: Yes (Other)
  Sender: FDA-Public Use
  Company Number: CA-ROCHE-3142912

PATIENT
  Age: 60 Year

DRUGS (8)
  1. CLONAZEPAM [Suspect]
     Active Substance: CLONAZEPAM
     Indication: Product used for unknown indication
     Dosage: FIRST ADMINISTRATION OF DRUG DOSE WAS NOT PROVIDED
  2. DICLOFENAC SODIUM [Suspect]
     Active Substance: DICLOFENAC SODIUM
     Indication: Product used for unknown indication
     Dosage: TWICE A DAY?DAILY DOSE: 100 MILLIGRAM
  3. DULOXETINE HYDROCHLORIDE [Suspect]
     Active Substance: DULOXETINE HYDROCHLORIDE
     Indication: Product used for unknown indication
     Dosage: DAILY DOSE: 60 MILLIGRAM
     Route: 048
  4. PERINDOPRIL [Suspect]
     Active Substance: PERINDOPRIL
     Indication: Product used for unknown indication
     Dosage: DAILY DOSE: 5 MILLIGRAM
  5. CELECOXIB [Concomitant]
     Active Substance: CELECOXIB
  6. NAPROXEN [Concomitant]
     Active Substance: NAPROXEN
     Dosage: TABLET (EXTENDED-RELEASE)
  7. FOLIC ACID [Concomitant]
     Active Substance: FOLIC ACID
  8. ADALIMUMAB [Concomitant]
     Active Substance: ADALIMUMAB
     Route: 058

REACTIONS (6)
  - Nasopharyngitis [Unknown]
  - Coccydynia [Unknown]
  - Rheumatoid arthritis [Unknown]
  - Pain in extremity [Unknown]
  - Weight increased [Unknown]
  - Pain [Unknown]
